FAERS Safety Report 17545063 (Version 1)
Quarter: 2020Q1

REPORT INFORMATION
  Report Type: Spontaneous
  Country: US (occurrence: US)
  Receive Date: 20200313
  Receipt Date: 20200313
  Transmission Date: 20200409
  Serious: No
  Sender: FDA-Public Use
  Company Number: None

PATIENT
  Age: 26 Year
  Sex: Female
  Weight: 96.75 kg

DRUGS (7)
  1. GARDEN OF LIFE MYKIND WOMEN^S MULTIVITAMIN [Concomitant]
  2. NUVARING [Concomitant]
     Active Substance: ETHINYL ESTRADIOL\ETONOGESTREL
  3. ADVIL [Concomitant]
     Active Substance: IBUPROFEN
  4. CBD OIL [Concomitant]
     Active Substance: CANNABIDIOL\HERBALS
  5. GARDEN OF LIFE MYKIND CALCIUM [Concomitant]
  6. NATURE MADE B12 [Concomitant]
  7. ELURYNG [Suspect]
     Active Substance: ETHINYL ESTRADIOL\ETONOGESTREL
     Indication: CONTRACEPTION
     Route: 067
     Dates: start: 20200126, end: 20200311

REACTIONS (3)
  - Vaginal discharge [None]
  - Muscle twitching [None]
  - Pain in extremity [None]

NARRATIVE: CASE EVENT DATE: 20200301
